FAERS Safety Report 7296665-X (Version None)
Quarter: 2011Q1

REPORT INFORMATION
  Report Type: 
  Country: None (occurrence: None)
  Receive Date: 20110216
  Receipt Date: 20110124
  Transmission Date: 20110831
  Serious: No
  Sender: FDA-Public Use
  Company Number: US-B.I. PHARMACEUTICALS,INC./RIDGEFIELD-2011-BP-02508BP

PATIENT
  Sex: Female

DRUGS (15)
  1. PAXIL [Concomitant]
     Indication: DEPRESSION
  2. BENEFIBER [Concomitant]
     Indication: CONSTIPATION
  3. SYNTHROID [Concomitant]
     Indication: HYPOTHYROIDISM
  4. PRADAXA [Suspect]
     Indication: ATRIAL FIBRILLATION
     Dosage: 300 MG
     Route: 048
     Dates: start: 20101213, end: 20110101
  5. GLYBURIDE [Concomitant]
     Indication: DIABETES MELLITUS
  6. MULTIVITAMIN [Concomitant]
     Indication: PROPHYLAXIS
  7. PRADAXA [Suspect]
     Indication: CARDIAC PACEMAKER INSERTION
  8. LASIX [Concomitant]
     Indication: HYPERTENSION
  9. PROTONIX [Concomitant]
     Indication: GASTROOESOPHAGEAL REFLUX DISEASE
  10. BENICAR [Concomitant]
     Indication: HYPERTENSION
  11. NORVASC [Concomitant]
     Indication: HYPERTENSION
  12. CELEBREX [Concomitant]
     Indication: ARTHRITIS
  13. ISOSORBIDE DINITRATE [Concomitant]
     Indication: CARDIAC DISORDER
  14. COLACE [Concomitant]
     Indication: CONSTIPATION
  15. LIPITOR [Concomitant]
     Indication: BLOOD CHOLESTEROL INCREASED

REACTIONS (6)
  - OROPHARYNGEAL PAIN [None]
  - DYSPHONIA [None]
  - URINARY RETENTION [None]
  - NASAL CONGESTION [None]
  - CHEST PAIN [None]
  - LACRIMATION INCREASED [None]
